FAERS Safety Report 14506420 (Version 2)
Quarter: 2018Q1

REPORT INFORMATION
  Report Type: Spontaneous
  Country: IE (occurrence: IE)
  Receive Date: 20180208
  Receipt Date: 20180214
  Transmission Date: 20180509
  Serious: Yes (Other)
  Sender: FDA-Public Use
  Company Number: IE-ASTRAZENECA-2018SE14299

PATIENT
  Age: 37 Year
  Sex: Female
  Weight: 48 kg

DRUGS (2)
  1. NEXIUM CONTROL [Suspect]
     Active Substance: ESOMEPRAZOLE MAGNESIUM
     Dosage: 40 MG/DAY (ONE TABLET IN THE MORNING WITH A GLASS OF WATER)
     Route: 048
     Dates: start: 20170719, end: 20170724
  2. NEXIUM [Suspect]
     Active Substance: ESOMEPRAZOLE MAGNESIUM
     Dosage: ONE TABLET (40 MG) IN THE MORNING WITH A GLASS OF WATER
     Route: 048
     Dates: start: 20170719, end: 20170724

REACTIONS (4)
  - Abdominal pain upper [Recovered/Resolved]
  - Extra dose administered [Unknown]
  - Sensation of foreign body [Recovered/Resolved]
  - Sinus tachycardia [Recovered/Resolved]

NARRATIVE: CASE EVENT DATE: 20170719
